FAERS Safety Report 7219938-5 (Version None)
Quarter: 2011Q1

REPORT INFORMATION
  Report Type: 
  Country: None (occurrence: None)
  Receive Date: 20110111
  Receipt Date: 20110105
  Transmission Date: 20110831
  Serious: Yes (Death, Other)
  Sender: FDA-Public Use
  Company Number: PHHY2011IN01288

PATIENT
  Age: 29 Year
  Sex: Male

DRUGS (2)
  1. STEROIDS NOS [Concomitant]
  2. CYCLOSPORINE [Suspect]
     Indication: RENAL TRANSPLANT

REACTIONS (11)
  - RESPIRATORY FAILURE [None]
  - DYSPNOEA [None]
  - LUNG CONSOLIDATION [None]
  - LEUKOPENIA [None]
  - NEUTROPENIA [None]
  - PULMONARY OEDEMA [None]
  - PNEUMONIA CYTOMEGALOVIRAL [None]
  - OPPORTUNISTIC INFECTION [None]
  - PULMONARY FUNCTION TEST DECREASED [None]
  - ZYGOMYCOSIS [None]
  - PYREXIA [None]
